FAERS Safety Report 20812517 (Version 1)
Quarter: 2022Q2

REPORT INFORMATION
  Report Type: Spontaneous
  Country: US (occurrence: US)
  Receive Date: 20220511
  Receipt Date: 20220511
  Transmission Date: 20220720
  Serious: Yes (Other)
  Sender: FDA-Public Use
  Company Number: US-SUN PHARMACEUTICAL INDUSTRIES LTD-2022R1-335815

PATIENT
  Age: 42 Year
  Sex: Female

DRUGS (1)
  1. METHADONE [Suspect]
     Active Substance: METHADONE HYDROCHLORIDE
     Indication: Product used for unknown indication
     Dosage: 115 MILLIGRAM, DAILY
     Route: 065

REACTIONS (4)
  - Exposure during pregnancy [Unknown]
  - Placental insufficiency [Unknown]
  - Foetal heart rate deceleration abnormality [Unknown]
  - Umbilical cord compression [Unknown]
